FAERS Safety Report 5911772-9 (Version None)
Quarter: 2008Q4

REPORT INFORMATION
  Report Type: 
  Country: None (occurrence: None)
  Receive Date: 20081003
  Receipt Date: 20080919
  Transmission Date: 20090506
  Serious: Yes (Death)
  Sender: FDA-Public Use
  Company Number: 2007S1000364

PATIENT
  Age: 69 Year
  Sex: Male

DRUGS (12)
  1. CUBICIN [Suspect]
     Indication: MULTI-ORGAN FAILURE
     Dosage: 6 MG/KG;Q24G;IV
     Route: 042
     Dates: start: 20070510, end: 20070510
  2. CUBICIN [Suspect]
     Indication: STAPHYLOCOCCAL INFECTION
     Dosage: 6 MG/KG;Q24G;IV
     Route: 042
     Dates: start: 20070510, end: 20070510
  3. AMIODARONE [Concomitant]
  4. NADROPARIN [Concomitant]
  5. SODIUM BICARBONATE [Concomitant]
  6. SODIUM CHLORIDE INJ [Concomitant]
  7. PANTORPRAZOLE [Concomitant]
  8. FUROSEMIDE [Concomitant]
  9. KABIVEN [Concomitant]
  10. GLUCOSE [Concomitant]
  11. CALEOPOLD [Concomitant]
  12. VANCOMYCIN HYDROCHLORIDE [Concomitant]

REACTIONS (2)
  - DISEASE PROGRESSION [None]
  - ENDOCARDITIS [None]
